FAERS Safety Report 15430726 (Version 2)
Quarter: 2018Q4

REPORT INFORMATION
  Report Type: Spontaneous
  Country: US (occurrence: US)
  Receive Date: 20180926
  Receipt Date: 20181001
  Transmission Date: 20190204
  Serious: Yes (Death, Life-Threatening, Other)
  Sender: FDA-Public Use
  Company Number: US-TEVA-2018-US-957619

PATIENT
  Age: 14 Year
  Sex: Female

DRUGS (2)
  1. PROPOFOL. [Suspect]
     Active Substance: PROPOFOL
     Route: 050
  2. KETAMINE [Suspect]
     Active Substance: KETAMINE
     Route: 065

REACTIONS (8)
  - Heart injury [Unknown]
  - Seizure [Unknown]
  - Bradycardia [Unknown]
  - Toxicity to various agents [Fatal]
  - Myocardial ischaemia [Unknown]
  - Propofol infusion syndrome [Unknown]
  - Respiratory depression [Unknown]
  - Cardiac arrest [Unknown]
